FAERS Safety Report 4356814-X (Version None)
Quarter: 2004Q2

REPORT INFORMATION
  Report Type: 
  Country: None (occurrence: None)
  Receive Date: 20040507
  Receipt Date: 20040427
  Transmission Date: 20050107
  Serious: Yes (Life-Threatening, Hospitalization, Other)
  Sender: FDA-Public Use
  Company Number: 2004028759

PATIENT
  Age: 25 Year
  Sex: Female

DRUGS (4)
  1. SILDENAFIL (SILDENAFIL) [Suspect]
     Indication: PULMONARY HYPERTENSION
     Dosage: 150 MG (3 IN 1 D), ORAL
     Route: 048
     Dates: start: 20021102
  2. DILTIAZEM [Concomitant]
  3. FUROSEMIDE [Concomitant]
  4. DIGOXIN [Concomitant]

REACTIONS (5)
  - ASTHENIA [None]
  - DYSPNOEA [None]
  - FATIGUE [None]
  - PAIN [None]
  - TREATMENT NONCOMPLIANCE [None]
